FAERS Safety Report 6254166-1 (Version None)
Quarter: 2009Q3

REPORT INFORMATION
  Report Type: 
  Country: None (occurrence: None)
  Receive Date: 20090702
  Receipt Date: 20090611
  Transmission Date: 20100115
  Serious: Yes (Other)
  Sender: FDA-Public Use
  Company Number: US-BAYER-200923768NA

PATIENT
  Age: 64 Year
  Sex: Male

DRUGS (15)
  1. MAGNEVIST [Suspect]
     Indication: NUCLEAR MAGNETIC RESONANCE IMAGING
     Dates: start: 20070110, end: 20070110
  2. MAGNEVIST [Suspect]
     Dates: start: 20070613, end: 20070613
  3. ALLOPURINOL [Concomitant]
  4. COLCHICINE [Concomitant]
  5. PREDNISONE [Concomitant]
  6. LASIX [Concomitant]
  7. TOPROL-XL [Concomitant]
  8. NORVASC [Concomitant]
  9. BACTRIM [Concomitant]
     Indication: OEDEMA PERIPHERAL
  10. KEFLEX [Concomitant]
     Indication: ERYTHEMA
  11. ZOLINZA [Concomitant]
     Indication: SARCOMA
     Dates: start: 20071001
  12. NEXAVAR [Concomitant]
     Indication: SARCOMA
  13. EPOGEN [Concomitant]
  14. PROCRIT [Concomitant]
  15. THALIDOMIDE [Concomitant]

REACTIONS (4)
  - NEPHROGENIC SYSTEMIC FIBROSIS [None]
  - OEDEMA PERIPHERAL [None]
  - SKIN HYPERPIGMENTATION [None]
  - SKIN TIGHTNESS [None]
